FAERS Safety Report 7594265-5 (Version None)
Quarter: 2011Q3

REPORT INFORMATION
  Report Type: 
  Country: None (occurrence: None)
  Receive Date: 20110706
  Receipt Date: 20110627
  Transmission Date: 20111222
  Serious: Yes (Other)
  Sender: FDA-Public Use
  Company Number: US-ASTRAZENECA-2011SE38801

PATIENT
  Age: 426 Month
  Sex: Female

DRUGS (5)
  1. METOPROLOL TARTRATE [Concomitant]
     Indication: HYPERTENSION
     Route: 048
  2. LASIX [Concomitant]
     Indication: FLUID RETENTION
     Route: 048
  3. SEROQUEL XR [Suspect]
     Route: 048
     Dates: start: 20101101, end: 20110101
  4. SEROQUEL XR [Suspect]
     Indication: BIPOLAR DISORDER
     Route: 048
  5. HYDROCHLOROTHIAZIDE [Concomitant]
     Indication: FLUID RETENTION
     Route: 048

REACTIONS (5)
  - MEMORY IMPAIRMENT [None]
  - LOWER LIMB FRACTURE [None]
  - ADVERSE DRUG REACTION [None]
  - SOMNOLENCE [None]
  - WEIGHT INCREASED [None]
